FAERS Safety Report 13561628 (Version 1)
Quarter: 2017Q2

REPORT INFORMATION
  Report Type: Report from Study
  Country: US (occurrence: US)
  Receive Date: 20170518
  Receipt Date: 20170518
  Transmission Date: 20170830
  Serious: Yes (Other)
  Sender: FDA-Public Use
  Company Number: US-ACTELION-A-NJ2017-149316

PATIENT
  Age: 65 Year
  Sex: Male
  Weight: 96.15 kg

DRUGS (2)
  1. SILDENAFIL. [Concomitant]
     Active Substance: SILDENAFIL
  2. OPSUMIT [Suspect]
     Active Substance: MACITENTAN
     Indication: PULMONARY ARTERIAL HYPERTENSION
     Dosage: 10 MG, QD
     Route: 048
     Dates: start: 20161013

REACTIONS (8)
  - Abnormal behaviour [Unknown]
  - Oedema peripheral [Unknown]
  - Gastrooesophageal reflux disease [Unknown]
  - Viral upper respiratory tract infection [Unknown]
  - Cardiac flutter [Recovered/Resolved]
  - Influenza like illness [Unknown]
  - Syncope [Unknown]
  - Amnesia [Unknown]

NARRATIVE: CASE EVENT DATE: 20170402
